FAERS Safety Report 4828256-1 (Version None)
Quarter: 2005Q4

REPORT INFORMATION
  Report Type: 
  Country: None (occurrence: None)
  Receive Date: 20051115
  Receipt Date: 20050901
  Transmission Date: 20060501
  Serious: Yes (Other)
  Sender: FDA-Public Use
  Company Number: US-BRISTOL-MYERS SQUIBB COMPANY-13097068

PATIENT
  Age: 32 Year
  Sex: Male
  Weight: 94 kg

DRUGS (2)
  1. SUSTIVA [Suspect]
  2. TRUVADA [Concomitant]

REACTIONS (1)
  - HEPATIC ENZYME INCREASED [None]
